FAERS Safety Report 4984364-6 (Version None)
Quarter: 2006Q2

REPORT INFORMATION
  Report Type: 
  Country: None (occurrence: None)
  Receive Date: 20060427
  Receipt Date: 20060418
  Transmission Date: 20061013
  Serious: Yes (Other)
  Sender: FDA-Public Use
  Company Number: 2006UW07131

PATIENT
  Age: 55 Year
  Sex: Male

DRUGS (12)
  1. CRESTOR [Suspect]
     Route: 048
  2. COVERSYL [Suspect]
     Route: 048
  3. TAMIFLU [Suspect]
     Route: 048
  4. DIOVOL [Concomitant]
     Route: 048
  5. DOCUSATE SODIUM [Concomitant]
     Route: 048
  6. FOLIC ACID [Concomitant]
     Route: 048
  7. METOPROLOL [Concomitant]
     Route: 048
  8. MILK OF MAGNESIA TAB [Concomitant]
     Route: 048
  9. PHENOBARBITAL TAB [Concomitant]
     Route: 048
  10. RANITIDINE [Concomitant]
     Route: 048
  11. VITAMIN B-12 [Concomitant]
     Route: 048
  12. VITAMIN B6 [Concomitant]
     Route: 048

REACTIONS (5)
  - ERYTHEMA [None]
  - PRURITUS [None]
  - RASH [None]
  - SWELLING FACE [None]
  - URTICARIA [None]
